FAERS Safety Report 4283210-6 (Version None)
Quarter: 2004Q1

REPORT INFORMATION
  Report Type: 
  Country: None (occurrence: None)
  Receive Date: 20040129
  Receipt Date: 20040121
  Transmission Date: 20041129
  Serious: Yes (Life-Threatening, Other)
  Sender: FDA-Public Use
  Company Number: 2003189617GB

PATIENT
  Age: 15 Year
  Sex: Male
  Weight: 66.3 kg

DRUGS (1)
  1. GENOTROPIN [Suspect]

REACTIONS (3)
  - MALIGNANT OLIGODENDROGLIOMA [None]
  - MEMORY IMPAIRMENT [None]
  - NEOPLASM RECURRENCE [None]
